FAERS Safety Report 8570480-9 (Version None)
Quarter: 2012Q3

REPORT INFORMATION
  Report Type: 
  Country: None (occurrence: None)
  Receive Date: 20120803
  Receipt Date: 20120723
  Transmission Date: 20120928
  Serious: No
  Sender: FDA-Public Use
  Company Number: US-ASTRAZENECA-2008UW01843

PATIENT
  Age: 67 Year
  Sex: Male

DRUGS (5)
  1. PULMICORT [Interacting]
     Route: 055
  2. METOPROLOL TARTRATE [Concomitant]
  3. LISINOPRIL [Interacting]
     Route: 048
  4. SYMBICORT [Suspect]
     Dosage: UNKNOWN FREQUENCY
     Route: 055
  5. NEXIUM [Suspect]
     Route: 048

REACTIONS (7)
  - PNEUMONIA [None]
  - FLATULENCE [None]
  - DRUG INTERACTION [None]
  - GASTROINTESTINAL SOUNDS ABNORMAL [None]
  - SWELLING [None]
  - DRUG INEFFECTIVE [None]
  - GASTROOESOPHAGEAL REFLUX DISEASE [None]
